FAERS Safety Report 7946223-6 (Version None)
Quarter: 2011Q4

REPORT INFORMATION
  Report Type: 
  Country: None (occurrence: None)
  Receive Date: 20111129
  Receipt Date: 20111123
  Transmission Date: 20120403
  Serious: Yes (Other)
  Sender: FDA-Public Use
  Company Number: DE-ROCHE-1016216

PATIENT
  Age: 50 Year
  Sex: Female

DRUGS (2)
  1. CISPLATIN [Suspect]
     Indication: LUNG ADENOCARCINOMA
     Route: 065
  2. AVASTIN [Suspect]
     Indication: LUNG ADENOCARCINOMA
     Route: 065

REACTIONS (1)
  - GAIT DISTURBANCE [None]
